FAERS Safety Report 5224550-3 (Version None)
Quarter: 2007Q1

REPORT INFORMATION
  Report Type: 
  Country: None (occurrence: None)
  Receive Date: 20070126
  Receipt Date: 20070110
  Transmission Date: 20070707
  Serious: Yes (Death, Other)
  Sender: FDA-Public Use
  Company Number: PAR_1285_2007

PATIENT
  Age: 18 Year
  Sex: Male

DRUGS (8)
  1. IBUPROFEN [Suspect]
     Dosage: DF
  2. NAPROXEN [Suspect]
     Dosage: DF
  3. ACETAMINOPHEN AND CODEINE PHOSPHATE [Suspect]
     Dosage: DF
  4. ASPIRIN [Suspect]
     Dosage: DF
  5. CYCLOBENZAPRINE HCL [Suspect]
     Dosage: DF
  6. ESCITALOPRAM OXALATE [Suspect]
     Dosage: DF
  7. PSEUDOEPHEDRINE HCL [Suspect]
     Dosage: DF
  8. GUAIFENESIN [Suspect]
     Dosage: DF

REACTIONS (12)
  - APNOEA [None]
  - BLOOD PH DECREASED [None]
  - BODY TEMPERATURE INCREASED [None]
  - COMPLETED SUICIDE [None]
  - HEART RATE INCREASED [None]
  - HYPOTENSION [None]
  - HYPOTONIA [None]
  - LOSS OF CONSCIOUSNESS [None]
  - PCO2 INCREASED [None]
  - PO2 INCREASED [None]
  - TACHYCARDIA [None]
  - URINARY RETENTION [None]
